FAERS Safety Report 19468664 (Version 2)
Quarter: 2021Q3

REPORT INFORMATION
  Report Type: Spontaneous
  Country: US (occurrence: US)
  Receive Date: 20210628
  Receipt Date: 20210819
  Transmission Date: 20211014
  Serious: No
  Sender: FDA-Public Use
  Company Number: US-JNJFOC-20210653604

PATIENT
  Age: 27 Year
  Sex: Female

DRUGS (1)
  1. SPRAVATO [Suspect]
     Active Substance: ESKETAMINE
     Indication: PRODUCT USED FOR UNKNOWN INDICATION
     Dates: start: 20210622

REACTIONS (2)
  - Hypoaesthesia [Unknown]
  - Taste disorder [Unknown]

NARRATIVE: CASE EVENT DATE: 20210622
